FAERS Safety Report 13567909 (Version 3)
Quarter: 2017Q2

REPORT INFORMATION
  Report Type: Spontaneous
  Country: US (occurrence: US)
  Receive Date: 20170522
  Receipt Date: 20170529
  Transmission Date: 20170830
  Serious: Yes (Death, Other)
  Sender: FDA-Public Use
  Company Number: US-009507513-1705USA009560

PATIENT
  Age: 4 Year
  Sex: Male

DRUGS (10)
  1. AMPHOTERICIN B. [Suspect]
     Active Substance: AMPHOTERICIN B
     Indication: MENINGOENCEPHALITIS AMOEBIC
     Dosage: UNK
     Route: 042
     Dates: start: 2015
  2. LEVETIRACETAM. [Concomitant]
     Active Substance: LEVETIRACETAM
     Indication: ELECTROENCEPHALOGRAM ABNORMAL
     Dosage: 30 MG/KG, UNK
     Dates: start: 2015
  3. DEXAMETHASONE SODIUM PHOSPHATE. [Suspect]
     Active Substance: DEXAMETHASONE SODIUM PHOSPHATE
     Indication: INTRACRANIAL PRESSURE INCREASED
     Dosage: UNK
     Route: 042
     Dates: start: 2015
  4. RIFAMPIN. [Suspect]
     Active Substance: RIFAMPIN
     Indication: MENINGOENCEPHALITIS AMOEBIC
     Dosage: UNK
     Route: 042
     Dates: start: 2015
  5. FLUCONAZOLE. [Suspect]
     Active Substance: FLUCONAZOLE
     Indication: MENINGOENCEPHALITIS AMOEBIC
     Dosage: UNK
     Route: 042
     Dates: start: 2015
  6. PENTOBARBITAL. [Concomitant]
     Active Substance: PENTOBARBITAL
     Indication: ELECTROENCEPHALOGRAM ABNORMAL
     Dosage: 30 MG/KG, UNK
     Dates: start: 2015
  7. MILTEFOSINE [Suspect]
     Active Substance: MILTEFOSINE
     Indication: MENINGOENCEPHALITIS AMOEBIC
     Dosage: UNK, VIA NASOGASTRIC TUBE
     Dates: start: 2015
  8. AZITHROMYCIN ANHYDROUS. [Suspect]
     Active Substance: AZITHROMYCIN ANHYDROUS
     Indication: MENINGOENCEPHALITIS AMOEBIC
     Dosage: UNK
     Route: 042
     Dates: start: 2015
  9. LORAZEPAM. [Concomitant]
     Active Substance: LORAZEPAM
     Indication: SEIZURE
     Dosage: UNK
     Route: 042
     Dates: start: 2015
  10. FOSPHENYTOIN SODIUM. [Concomitant]
     Active Substance: FOSPHENYTOIN SODIUM
     Indication: SEIZURE
     Dosage: UNK
     Route: 042
     Dates: start: 2015

REACTIONS (2)
  - Intracranial pressure increased [Fatal]
  - Drug ineffective [Fatal]

NARRATIVE: CASE EVENT DATE: 2015
